FAERS Safety Report 23250157 (Version 1)
Quarter: 2023Q4

REPORT INFORMATION
  Report Type: Report from Study
  Country: GR (occurrence: GR)
  Receive Date: 20231201
  Receipt Date: 20231201
  Transmission Date: 20240109
  Serious: Yes (Other)
  Sender: FDA-Public Use
  Company Number: GR-Accord-392134

PATIENT
  Age: 15 Year
  Sex: Female

DRUGS (5)
  1. MYCOPHENOLATE MOFETIL [Suspect]
     Active Substance: MYCOPHENOLATE MOFETIL
     Indication: Immunosuppression
  2. TACROLIMUS [Suspect]
     Active Substance: TACROLIMUS
     Indication: Immunosuppression
  3. METHYLPREDNISOLONE [Suspect]
     Active Substance: METHYLPREDNISOLONE
     Indication: Immunosuppression
  4. RITUXIMAB [Concomitant]
     Active Substance: RITUXIMAB
  5. BASILIXIMAB [Concomitant]
     Active Substance: BASILIXIMAB

REACTIONS (3)
  - Cystitis haemorrhagic [Unknown]
  - BK virus infection [Recovered/Resolved]
  - Complications of transplanted kidney [Recovered/Resolved]
